FAERS Safety Report 9693276 (Version 2)
Quarter: 2014Q1

REPORT INFORMATION
  Report Type: Report from Study
  Country: US (occurrence: US)
  Receive Date: 20131118
  Receipt Date: 20140115
  Transmission Date: 20141002
  Serious: Yes (Hospitalization, Other)
  Sender: FDA-Public Use
  Company Number: US-ROCHE-1301997

PATIENT
  Age: 54 Year
  Sex: Female

DRUGS (21)
  1. AVASTIN [Suspect]
     Indication: GLIONEURONAL TUMOUR
     Route: 065
     Dates: start: 20121120
  2. AVASTIN [Suspect]
     Indication: GLIOMA
     Route: 065
     Dates: start: 20130423
  3. AVASTIN [Suspect]
     Indication: BRAIN NEOPLASM
     Route: 065
     Dates: start: 20130509
  4. AVASTIN [Suspect]
     Route: 065
     Dates: start: 20130521
  5. AVASTIN [Suspect]
     Route: 065
     Dates: start: 20130604
  6. AVASTIN [Suspect]
     Route: 065
     Dates: start: 20130618
  7. AVASTIN [Suspect]
     Route: 065
     Dates: start: 20130716
  8. AVASTIN [Suspect]
     Route: 065
     Dates: start: 20130728
  9. AVASTIN [Suspect]
     Route: 065
     Dates: start: 20130813
  10. AVASTIN [Suspect]
     Route: 065
     Dates: start: 20130827
  11. ZOFRAN [Concomitant]
     Route: 065
  12. DECADRON [Concomitant]
     Route: 065
  13. ATROPINE [Concomitant]
     Route: 065
  14. LANTUS [Concomitant]
  15. EMLA [Concomitant]
  16. LISINOPRIL [Concomitant]
  17. METFORMIN HYDROCHLORIDE [Concomitant]
     Route: 065
  18. PRILOSEC [Concomitant]
  19. OXYCODONE [Concomitant]
  20. SIMVASTATIN [Concomitant]
  21. COUMADIN [Concomitant]

REACTIONS (23)
  - Pulmonary embolism [Unknown]
  - Deep vein thrombosis [Unknown]
  - Visual impairment [Unknown]
  - Blindness [Unknown]
  - Pulmonary embolism [Unknown]
  - Optic neuritis [Unknown]
  - Hydrocephalus [Unknown]
  - Nausea [Unknown]
  - Diarrhoea [Unknown]
  - Anaemia [Unknown]
  - Alopecia [Unknown]
  - Arthralgia [Unknown]
  - Musculoskeletal pain [Unknown]
  - Blood pressure systolic increased [Unknown]
  - Headache [Unknown]
  - Diarrhoea [Unknown]
  - Chest pain [Unknown]
  - Optic neuropathy [Unknown]
  - Proteinuria [Unknown]
  - Disease progression [Not Recovered/Not Resolved]
  - Visual impairment [Not Recovered/Not Resolved]
  - Oedema [Unknown]
  - Nuclear magnetic resonance imaging brain abnormal [Unknown]
